FAERS Safety Report 6800875-2 (Version None)
Quarter: 2010Q2

REPORT INFORMATION
  Report Type: 
  Country: None (occurrence: None)
  Receive Date: 20100629
  Receipt Date: 20100621
  Transmission Date: 20101027
  Serious: Yes (Other)
  Sender: FDA-Public Use
  Company Number: IN-BAXTER-2010BH016703

PATIENT
  Age: 65 Year
  Sex: Female

DRUGS (1)
  1. ALBUMIN (HUMAN) [Suspect]
     Indication: DRUG USE FOR UNKNOWN INDICATION
     Route: 042

REACTIONS (1)
  - ANAPHYLACTIC REACTION [None]
